FAERS Safety Report 10598582 (Version 1)
Quarter: 2014Q4

REPORT INFORMATION
  Report Type: Spontaneous
  Country: US (occurrence: None)
  Receive Date: 20141119
  Receipt Date: 20141119
  Transmission Date: 20150529
  Serious: No
  Sender: FDA-Public Use
  Company Number: 1000071607

PATIENT
  Sex: Female

DRUGS (3)
  1. ADVAIR HFA [Suspect]
     Active Substance: FLUTICASONE PROPIONATE\SALMETEROL XINAFOATE
     Dates: start: 20141008, end: 20141014
  2. TUDORZA PRESSAIR [Suspect]
     Active Substance: ACLIDINIUM BROMIDE
     Dosage: RESPIRATORY (INHALATION)?
     Route: 055
     Dates: start: 20141008, end: 20141014
  3. PREDNISONE (PREDNISONE) [Suspect]
     Active Substance: PREDNISONE
     Dates: start: 20141008, end: 20141014

REACTIONS (4)
  - Nervousness [None]
  - Chest pain [None]
  - Chest discomfort [None]
  - Heart rate increased [None]

NARRATIVE: CASE EVENT DATE: 20141014
